FAERS Safety Report 8528542-8 (Version None)
Quarter: 2012Q3

REPORT INFORMATION
  Report Type: 
  Country: None (occurrence: None)
  Receive Date: 20120723
  Receipt Date: 20120712
  Transmission Date: 20120928
  Serious: Yes (Other)
  Sender: FDA-Public Use
  Company Number: US-BIOGENIDEC-2012BI016355

PATIENT
  Age: 37 Year
  Sex: Female

DRUGS (10)
  1. TYSABRI [Suspect]
     Indication: MULTIPLE SCLEROSIS
     Route: 042
     Dates: start: 20080922, end: 20120430
  2. CYMBALTA [Concomitant]
     Route: 048
  3. PROVIGIL [Concomitant]
     Route: 048
  4. GABAPENTIN [Concomitant]
     Route: 048
  5. ORAL CONTRACEPTION [Concomitant]
  6. BACLOFEN [Concomitant]
     Route: 048
  7. PROVIGIL [Concomitant]
     Route: 048
  8. REQUIP [Concomitant]
     Route: 048
  9. ENABLEX [Concomitant]
     Route: 048
  10. OXCARBAZEPINE [Concomitant]
     Route: 048

REACTIONS (1)
  - ABORTION SPONTANEOUS [None]
